FAERS Safety Report 14478617 (Version 3)
Quarter: 2018Q1

REPORT INFORMATION
  Report Type: Spontaneous
  Country: US (occurrence: US)
  Receive Date: 20180202
  Receipt Date: 20180321
  Transmission Date: 20180509
  Serious: Yes (Other)
  Sender: FDA-Public Use
  Company Number: US-ROCHE-2060693

PATIENT
  Sex: Male

DRUGS (1)
  1. AVASTIN [Suspect]
     Active Substance: BEVACIZUMAB
     Indication: PRODUCT USED FOR UNKNOWN INDICATION
     Dosage: STRENGTH: 100 MG/4 ML
     Route: 050

REACTIONS (5)
  - Blindness unilateral [Unknown]
  - Off label use [Unknown]
  - Intentional product use issue [Unknown]
  - Injury [Unknown]
  - Product contamination [Unknown]
